FAERS Safety Report 9704098 (Version 2)
Quarter: 2014Q1

REPORT INFORMATION
  Report Type: Spontaneous
  Country: US (occurrence: US)
  Receive Date: 20131122
  Receipt Date: 20140116
  Transmission Date: 20141002
  Serious: Yes (Hospitalization)
  Sender: FDA-Public Use
  Company Number: US-B.I. PHARMACEUTICALS,INC./RIDGEFIELD-2013-BI-37727BP

PATIENT
  Sex: Female
  Weight: 79.38 kg

DRUGS (17)
  1. PRADAXA [Suspect]
     Indication: ATRIAL FIBRILLATION
     Dosage: 150 MG
     Dates: start: 20110519, end: 20111125
  2. VITAMIN D [Concomitant]
     Dosage: 1000 U
  3. HUMIRA INJECTION [Concomitant]
     Indication: RHEUMATOID ARTHRITIS
     Dosage: 2.8571 MG
  4. FOLIC ACID [Concomitant]
     Dosage: 1 MG
  5. LEVOTHYROXINE [Concomitant]
     Dosage: 0.075 MG
  6. MULTIVITAMIN C [Concomitant]
     Dosage: 500 MG
  7. SODIUM BICARB [Concomitant]
  8. PRILOSEC [Concomitant]
     Dosage: 10 MG
  9. EVOXAC [Concomitant]
     Dosage: 90 MG
  10. FUROSEMIDE [Concomitant]
     Dosage: 40 MG
  11. ADVAIR DISKUS [Concomitant]
     Dosage: 2 PUF
  12. CALCIUM CARBONATE [Concomitant]
     Dosage: 600 MG
  13. METHOTREXATE [Concomitant]
  14. POTASSIUM CHLORIDE [Concomitant]
     Dosage: 20 MEQ
  15. PROAIR HFA [Concomitant]
  16. LISINOPRIL [Concomitant]
     Dosage: 10 MG
  17. PRAVASTATIN [Concomitant]
     Dosage: 10 MG

REACTIONS (2)
  - Gastrointestinal haemorrhage [Unknown]
  - Haemorrhagic anaemia [Unknown]
